FAERS Safety Report 5669091-4 (Version None)
Quarter: 2008Q1

REPORT INFORMATION
  Report Type: 
  Country: None (occurrence: None)
  Receive Date: 20080317
  Receipt Date: 20080306
  Transmission Date: 20080703
  Serious: Yes (Other)
  Sender: FDA-Public Use
  Company Number: US-JNJFOC-20080302360

PATIENT
  Sex: Female
  Weight: 53.52 kg

DRUGS (2)
  1. DURAGESIC-100 [Suspect]
     Indication: BACK PAIN
     Route: 062
  2. LORTAB [Concomitant]
     Indication: PAIN
     Route: 048

REACTIONS (10)
  - APPLICATION SITE IRRITATION [None]
  - APPLICATION SITE PRURITUS [None]
  - EUPHORIC MOOD [None]
  - EXTRASYSTOLES [None]
  - HYPERHIDROSIS [None]
  - HYPOTHYROIDISM [None]
  - LUNG DISORDER [None]
  - OEDEMA PERIPHERAL [None]
  - SENSORY DISTURBANCE [None]
  - VISUAL ACUITY REDUCED [None]
